FAERS Safety Report 16329278 (Version 2)
Quarter: 2019Q2

REPORT INFORMATION
  Report Type: Spontaneous
  Country: NL (occurrence: NL)
  Receive Date: 20190520
  Receipt Date: 20190522
  Transmission Date: 20190711
  Serious: Yes (Hospitalization, Other)
  Sender: FDA-Public Use
  Company Number: NL-LUPIN PHARMACEUTICALS INC.-2019-02928

PATIENT
  Age: 24 Year
  Sex: Male

DRUGS (1)
  1. TRAMADOL HYDROCHLORIDE TABLET [Suspect]
     Active Substance: TRAMADOL HYDROCHLORIDE
     Indication: PRODUCT USED FOR UNKNOWN INDICATION
     Dosage: 1000 MILLIGRAM, QD
     Route: 065
     Dates: start: 2017, end: 2017

REACTIONS (15)
  - Hallucination, visual [Recovered/Resolved]
  - Incoherent [Recovered/Resolved]
  - Psychomotor hyperactivity [Recovered/Resolved]
  - Intentional overdose [Unknown]
  - Aggression [Recovered/Resolved]
  - Blood pressure increased [Recovered/Resolved]
  - Intentional product misuse [Unknown]
  - Insomnia [Recovered/Resolved]
  - Heart rate increased [Recovered/Resolved]
  - Restlessness [Recovered/Resolved]
  - Depressed level of consciousness [Recovered/Resolved]
  - Decreased appetite [Recovered/Resolved]
  - Hallucination, auditory [Recovered/Resolved]
  - Prescription drug used without a prescription [Unknown]
  - Toxicity to various agents [Recovered/Resolved]

NARRATIVE: CASE EVENT DATE: 2017
